FAERS Safety Report 17548533 (Version 1)
Quarter: 2020Q1

REPORT INFORMATION
  Report Type: Spontaneous
  Country: US (occurrence: US)
  Receive Date: 20200317
  Receipt Date: 20200317
  Transmission Date: 20200409
  Serious: Yes (Hospitalization, Other)
  Sender: FDA-Public Use
  Company Number: US-ADVANZ PHARMA-202003001613

PATIENT

DRUGS (2)
  1. DIGOXIN. [Suspect]
     Active Substance: DIGOXIN
     Indication: SUPRAVENTRICULAR TACHYCARDIA
     Dosage: UNK
  2. MIDODRINE [Interacting]
     Active Substance: MIDODRINE
     Indication: HYPOTENSION
     Dosage: 5 MG (1 DOSE AT 3.00 PM)
     Route: 048

REACTIONS (2)
  - Sinus bradycardia [Recovering/Resolving]
  - Drug interaction [Unknown]
